FAERS Safety Report 4645600-9 (Version None)
Quarter: 2005Q2

REPORT INFORMATION
  Report Type: 
  Country: None (occurrence: None)
  Receive Date: 20050331
  Receipt Date: 20050106
  Transmission Date: 20051028
  Serious: Yes (Hospitalization)
  Sender: FDA-Public Use
  Company Number: 05P-163-0285693-00

PATIENT
  Age: 63 Year
  Sex: Female

DRUGS (7)
  1. HUMIRA [Suspect]
     Indication: RHEUMATOID ARTHRITIS
     Dosage: 40 MG, 1 IN 2 WK, SUBCUTANEOUS
     Route: 058
     Dates: start: 20030711, end: 20050103
  2. TAMOXIFEN CITRATE [Concomitant]
  3. PREDNISONE [Concomitant]
  4. BUCINDOLOL HYDROCHLORIDE [Concomitant]
  5. METHOTREXATE SODIUM [Concomitant]
  6. FOLIC ACID [Concomitant]
  7. VALSARTAN [Concomitant]

REACTIONS (2)
  - GASTRIC ULCER [None]
  - LYMPHOMA [None]
